FAERS Safety Report 15121383 (Version 1)
Quarter: 2018Q3

REPORT INFORMATION
  Report Type: Spontaneous
  Country: US (occurrence: US)
  Receive Date: 20180709
  Receipt Date: 20180709
  Transmission Date: 20181010
  Serious: Yes (Hospitalization)
  Sender: FDA-Public Use
  Company Number: US-TERSERA THERAPEUTICS, LLC-2051575

PATIENT
  Sex: Male
  Weight: 151.93 kg

DRUGS (1)
  1. ZOLADEX [Suspect]
     Active Substance: GOSERELIN ACETATE
     Indication: GENDER REASSIGNMENT THERAPY
     Route: 058
     Dates: start: 201701

REACTIONS (3)
  - Psychotic behaviour [Not Recovered/Not Resolved]
  - Blood glucose abnormal [Recovering/Resolving]
  - Off label use [Unknown]

NARRATIVE: CASE EVENT DATE: 201701
